FAERS Safety Report 10024360 (Version 1)
Quarter: 2014Q1

REPORT INFORMATION
  Report Type: Report from Study
  Country: BR (occurrence: BR)
  Receive Date: 20140320
  Receipt Date: 20140320
  Transmission Date: 20141002
  Serious: Yes (Death, Other)
  Sender: FDA-Public Use
  Company Number: PHHY2014BR032408

PATIENT
  Sex: Male
  Weight: 59 kg

DRUGS (2)
  1. FORASEQ [Suspect]
     Indication: LUNG DISORDER
     Dosage: UNK UKN, UNK
     Route: 048
  2. OMEPRAZOLE [Concomitant]
     Indication: GASTROINTESTINAL DISORDER
     Dosage: 1 DF, UNK
     Dates: end: 2012

REACTIONS (6)
  - Renal disorder [Fatal]
  - Syncope [Unknown]
  - Fall [Unknown]
  - Malaise [Unknown]
  - Blood pressure decreased [Unknown]
  - Face injury [Unknown]
